FAERS Safety Report 4344270-7 (Version None)
Quarter: 2004Q2

REPORT INFORMATION
  Report Type: 
  Country: None (occurrence: None)
  Receive Date: 20040420
  Receipt Date: 20040408
  Transmission Date: 20050107
  Serious: Yes (Other)
  Sender: FDA-Public Use
  Company Number: GB-JNJFOC-20040203333

PATIENT
  Age: 50 Year
  Sex: Female

DRUGS (3)
  1. RISPERDAL [Suspect]
     Indication: PSYCHOTIC DISORDER
     Dosage: 2 MG, 2 IN 1 DAY, ORAL
     Route: 048
  2. GENERAL ANAESTHETIC (ANAESTHETICS, GENERAL) [Concomitant]
  3. CITALOPRAM [Concomitant]

REACTIONS (4)
  - DELAYED RECOVERY FROM ANAESTHESIA [None]
  - DRUG CLEARANCE DECREASED [None]
  - METABOLIC DISORDER [None]
  - PSYCHOTIC DISORDER [None]
